FAERS Safety Report 25933605 (Version 1)
Quarter: 2025Q4

REPORT INFORMATION
  Report Type: Spontaneous
  Country: US (occurrence: US)
  Receive Date: 20251017
  Receipt Date: 20251017
  Transmission Date: 20260117
  Serious: No
  Sender: GALDERMA
  Company Number: US-GALDERMA-US2025018779

PATIENT

DRUGS (8)
  1. NEMLUVIO [Suspect]
     Active Substance: NEMOLIZUMAB-ILTO
     Indication: Dermatitis
     Dosage: UNK
     Route: 058
     Dates: start: 20250827, end: 20250827
  2. NEMLUVIO [Suspect]
     Active Substance: NEMOLIZUMAB-ILTO
     Indication: Pruritus
  3. HYDROXYCHLOROQUINE [Concomitant]
     Active Substance: HYDROXYCHLOROQUINE
     Indication: Sjogren^s syndrome
     Dosage: 200 MILLIGRAM, ONCE A DAY ON TUESDAY, THURSDAY, SATURDAY AND SUNDAY, TWICE A DAY ON MONDAY, WEDNESDA
  4. FOLIC ACID [Concomitant]
     Active Substance: FOLIC ACID
     Indication: Sjogren^s syndrome
     Dosage: 1 MILLIGRAM, QD, EVERY NIGHT
  5. METHOTREXATE [Concomitant]
     Active Substance: METHOTREXATE
     Indication: Sjogren^s syndrome
     Dosage: 6 DOSAGE FORMS, EVERY SATURDAY
     Dates: start: 2025
  6. HYDROXYZINE [Concomitant]
     Active Substance: HYDROXYZINE HYDROCHLORIDE
     Indication: Pruritus
     Dosage: UNK
     Dates: start: 202306
  7. XYZAL [Concomitant]
     Active Substance: LEVOCETIRIZINE DIHYDROCHLORIDE
     Indication: Pruritus
     Dosage: UNK
     Dates: start: 202405, end: 202405
  8. FEXOFENADINE [Concomitant]
     Active Substance: FEXOFENADINE HYDROCHLORIDE
     Indication: Pruritus
     Dosage: UNK
     Dates: start: 202405

REACTIONS (3)
  - Pruritus [Not Recovered/Not Resolved]
  - Inappropriate schedule of product administration [Recovered/Resolved]
  - Product storage error [Recovered/Resolved]

NARRATIVE: CASE EVENT DATE: 20250901
